FAERS Safety Report 9738435 (Version 4)
Quarter: 2014Q1

REPORT INFORMATION
  Report Type: Report from Study
  Country: CA (occurrence: CA)
  Receive Date: 20131208
  Receipt Date: 20140124
  Transmission Date: 20141002
  Serious: Yes (Hospitalization, Other)
  Sender: FDA-Public Use
  Company Number: CA-ROCHE-1304505

PATIENT
  Sex: Male

DRUGS (14)
  1. AVASTIN [Suspect]
     Indication: BRAIN NEOPLASM MALIGNANT
     Route: 042
     Dates: start: 20131004, end: 20131114
  2. ASAPHEN [Concomitant]
  3. HYDROCHLOROTHIAZIDE/IRBESARTAN [Concomitant]
  4. AMLODIPINE [Concomitant]
  5. LEVETIRACETAM [Concomitant]
  6. RAN-PANTOPRAZOLE [Concomitant]
  7. ONGLYZA [Concomitant]
  8. DEXAMETHASONE [Concomitant]
  9. METFORMIN [Concomitant]
  10. PRAVASTATIN [Concomitant]
  11. CORTES [Concomitant]
  12. NOVOLIN NPH [Concomitant]
     Dosage: 20 UNITS ONCE A DAY
     Route: 065
  13. NOVOLIN [Concomitant]
     Dosage: 10 UNITS IN AM, 6 UNITS AT LUNCH AND 8 UNITS AT DINNER
     Route: 065
  14. DECADRON [Concomitant]
     Route: 065

REACTIONS (5)
  - Hallucination [Unknown]
  - Hypersomnia [Unknown]
  - Amnesia [Unknown]
  - Blood blister [Unknown]
  - Sleep talking [Unknown]
